FAERS Safety Report 19025820 (Version 1)
Quarter: 2021Q1

REPORT INFORMATION
  Report Type: Spontaneous
  Country: US (occurrence: US)
  Receive Date: 20210318
  Receipt Date: 20210318
  Transmission Date: 20210420
  Serious: No
  Sender: FDA-Public Use
  Company Number: None

PATIENT
  Age: 48 Year
  Sex: Female
  Weight: 94.5 kg

DRUGS (4)
  1. CLONAZEPAM. [Suspect]
     Active Substance: CLONAZEPAM
     Indication: ANXIETY
     Route: 048
  2. LEVOTHYROXINE. [Concomitant]
     Active Substance: LEVOTHYROXINE
  3. VITAMIN D3 [Concomitant]
     Active Substance: CHOLECALCIFEROL
  4. VISKIN [Concomitant]

REACTIONS (17)
  - Alopecia [None]
  - Postural orthostatic tachycardia syndrome [None]
  - Autonomic nervous system imbalance [None]
  - Dyspnoea [None]
  - Rash [None]
  - Muscle contractions involuntary [None]
  - Allergy to chemicals [None]
  - Insomnia [None]
  - Headache [None]
  - Bedridden [None]
  - Myalgia [None]
  - Nausea [None]
  - Tachycardia [None]
  - Muscle atrophy [None]
  - Dyspepsia [None]
  - Ventricular extrasystoles [None]
  - Weight decreased [None]

NARRATIVE: CASE EVENT DATE: 20200301
